FAERS Safety Report 18942001 (Version 1)
Quarter: 2021Q1

REPORT INFORMATION
  Report Type: Report from Study
  Country: SE (occurrence: SE)
  Receive Date: 20210225
  Receipt Date: 20210225
  Transmission Date: 20210420
  Serious: Yes (Life-Threatening)
  Sender: FDA-Public Use
  Company Number: SE-PFIZER INC-2003181012SE

PATIENT
  Sex: Female

DRUGS (14)
  1. CYCLOPHOSPHAMIDE. [Suspect]
     Active Substance: CYCLOPHOSPHAMIDE
     Dosage: 1500 MG/M2, CYCLIC
     Route: 042
  2. FLURABLASTIN (FLUOROURACIL) [Suspect]
     Active Substance: FLUOROURACIL
     Indication: BREAST CANCER
     Dosage: 600 MG/M2, CYCLIC
     Route: 042
  3. MESNA. [Suspect]
     Active Substance: MESNA
     Dosage: 900 MG/M2, CYCLIC
     Route: 042
  4. MESNA. [Suspect]
     Active Substance: MESNA
     Indication: BREAST CANCER
     Dosage: 720 MG/M2, CYCLIC
     Route: 042
  5. FARMORUBICIN [Suspect]
     Active Substance: EPIRUBICIN HYDROCHLORIDE
     Dosage: 120 MG/M2, CYCLIC
     Route: 042
  6. GRANULOCYTE COLONY STIMULATING FACTOR [Concomitant]
     Active Substance: GRANULOCYTE COLONY-STIMULATING FACTOR NOS
     Dosage: 5 UG/KG
     Route: 058
  7. CYCLOPHOSPHAMIDE. [Suspect]
     Active Substance: CYCLOPHOSPHAMIDE
     Indication: BREAST CANCER
     Dosage: 900 MG/M2, CYCLIC
     Route: 042
  8. CYCLOPHOSPHAMIDE. [Suspect]
     Active Substance: CYCLOPHOSPHAMIDE
     Dosage: 1800 MG/M2, CYCLIC
     Route: 042
  9. FARMORUBICIN [Suspect]
     Active Substance: EPIRUBICIN HYDROCHLORIDE
     Dosage: 105 MG/M2, CYCLIC
     Route: 042
  10. MESNA. [Suspect]
     Active Substance: MESNA
     Dosage: 1080 MG/M2, CYCLIC
     Route: 042
  11. CYCLOPHOSPHAMIDE. [Suspect]
     Active Substance: CYCLOPHOSPHAMIDE
     Dosage: 1200 MG/M2, CYCLIC
     Route: 042
  12. FARMORUBICIN [Suspect]
     Active Substance: EPIRUBICIN HYDROCHLORIDE
     Indication: BREAST CANCER
     Dosage: 75 MG/M2, CYCLIC
     Route: 042
  13. FARMORUBICIN [Suspect]
     Active Substance: EPIRUBICIN HYDROCHLORIDE
     Dosage: 90 MG/M2, CYCLIC
     Route: 042
  14. TAMOXIFEN [Concomitant]
     Active Substance: TAMOXIFEN
     Dosage: 20 MG, DAILY FOR 5 YEARS

REACTIONS (1)
  - Circulatory collapse [Recovered/Resolved]
